FAERS Safety Report 12829339 (Version 1)
Quarter: 2016Q4

REPORT INFORMATION
  Report Type: Spontaneous
  Country: IT (occurrence: IT)
  Receive Date: 20161007
  Receipt Date: 20161007
  Transmission Date: 20170207
  Serious: Yes (Other)
  Sender: FDA-Public Use
  Company Number: IT-GLAXOSMITHKLINE-IT2016GSK142392

PATIENT
  Age: 43 Year
  Sex: Female

DRUGS (1)
  1. ALLI [Suspect]
     Active Substance: ORLISTAT
     Indication: PRODUCT USED FOR UNKNOWN INDICATION
     Dosage: 1 UNK, TID

REACTIONS (5)
  - Drug ineffective [Not Recovered/Not Resolved]
  - Abdominal distension [Recovering/Resolving]
  - Steatorrhoea [Unknown]
  - Anuria [Unknown]
  - Constipation [Unknown]
